FAERS Safety Report 9101739 (Version 1)
Quarter: 2013Q1

REPORT INFORMATION
  Report Type: Spontaneous
  Country: US (occurrence: None)
  Receive Date: 20130220
  Receipt Date: 20130220
  Transmission Date: 20140127
  Serious: Yes (Disabling)
  Sender: FDA-Public Use
  Company Number: None

PATIENT
  Age: 30 Year
  Sex: Male
  Weight: 74.84 kg

DRUGS (1)
  1. PAROXETINE [Suspect]
     Route: 048
     Dates: start: 20121114, end: 20130123

REACTIONS (1)
  - Muscular weakness [None]
